FAERS Safety Report 16219837 (Version 1)
Quarter: 2019Q2

REPORT INFORMATION
  Report Type: Spontaneous
  Country: US (occurrence: US)
  Receive Date: 20190420
  Receipt Date: 20190420
  Transmission Date: 20190711
  Serious: No
  Sender: FDA-Public Use
  Company Number: US-AMGEN-USASP2019058882

PATIENT
  Age: 63 Year
  Sex: Female

DRUGS (1)
  1. PROLIA [Suspect]
     Active Substance: DENOSUMAB
     Indication: OSTEOPOROSIS POSTMENOPAUSAL
     Dosage: UNK
     Route: 065

REACTIONS (7)
  - Discomfort [Unknown]
  - Hypercholesterolaemia [Unknown]
  - Chest pain [Recovered/Resolved]
  - Cough [Unknown]
  - Dysphagia [Unknown]
  - Fatigue [Unknown]
  - Pain in extremity [Unknown]
